FAERS Safety Report 7580980 (Version 4)
Quarter: 2013Q4

REPORT INFORMATION
  Report Type: Spontaneous
  Country: GB (occurrence: GB)
  Receive Date: 20100910
  Receipt Date: 20131016
  Transmission Date: 20140711
  Serious: Yes (Life-Threatening, Other)
  Sender: FDA-Public Use
  Company Number: GXKR2010GB09987

PATIENT
  Age: 19 Year
  Sex: Female

DRUGS (19)
  1. CHLORPHENIRAMINE [Suspect]
     Dosage: 10 MG, QID
     Route: 042
  2. OMEPRAZOLE [Suspect]
     Dosage: UNK UKN, UNK
  3. ONDANSETRON [Suspect]
     Dosage: 24 MG, QD
     Route: 042
  4. ONDANSETRON [Suspect]
     Dosage: 8 MG, TID
     Route: 042
  5. PARACETAMOL [Suspect]
     Dosage: UNK UKN, UNK
     Route: 042
  6. ACYCLOVIR [Suspect]
     Dosage: UNK UKN, UNK
  7. ALLOPURINOL [Suspect]
     Dosage: 300 MG, UNK
     Route: 048
  8. CASPOFUNGIN [Suspect]
     Dosage: 70 MG, QD
     Route: 042
  9. CICLOSPORIN [Suspect]
     Dosage: UNK UKN, UNK
  10. ETOPOPHOS [Suspect]
     Dosage: UNK UKN, UNK
     Route: 042
     Dates: start: 20070915, end: 20070915
  11. ETOPOPHOS [Suspect]
     Dosage: 4650 MG, UNK
     Route: 042
     Dates: start: 20070915, end: 20070915
  12. KETALAR [Suspect]
     Indication: PAIN
     Route: 042
     Dates: start: 20070921, end: 20070928
  13. KETALAR [Suspect]
     Dosage: 6 ML, QH
     Route: 042
     Dates: start: 20070921, end: 20070928
  14. KETALAR [Suspect]
     Dosage: 4 MG/ML (1-6ML PER HOUR)
     Route: 042
     Dates: start: 20070921, end: 20070928
  15. MORPHINE [Suspect]
     Route: 042
  16. NORETHISTERONE [Suspect]
     Dosage: 15 MG, TID
     Route: 065
  17. TAZOCIN [Suspect]
     Dosage: 4.5 MG, TID
     Route: 042
  18. TAZOCIN [Suspect]
     Dosage: 4.5 MG, TID
     Route: 042
  19. VORICONAZOLE [Suspect]
     Dosage: 200 MG, BID

REACTIONS (4)
  - Hepatotoxicity [Unknown]
  - Liver function test abnormal [Not Recovered/Not Resolved]
  - Dilatation intrahepatic duct acquired [Unknown]
  - Venoocclusive liver disease [Unknown]
